FAERS Safety Report 8446421-1 (Version None)
Quarter: 2012Q2

REPORT INFORMATION
  Report Type: 
  Country: None (occurrence: None)
  Receive Date: 20120618
  Receipt Date: 20120613
  Transmission Date: 20120825
  Serious: Yes (Death, Hospitalization, Other)
  Sender: FDA-Public Use
  Company Number: US-ABBOTT-12P-163-0945051-00

PATIENT
  Sex: Female

DRUGS (2)
  1. CREON [Suspect]
     Indication: CYSTIC FIBROSIS
     Dates: start: 20020101, end: 20120518
  2. ALBUTEROL [Concomitant]
     Indication: CYSTIC FIBROSIS

REACTIONS (22)
  - PARAESTHESIA [None]
  - LOCAL SWELLING [None]
  - OVARIAN CYST [None]
  - LYMPHADENOPATHY [None]
  - PNEUMONIA [None]
  - COMA [None]
  - CEREBROVASCULAR ACCIDENT [None]
  - CARDIOVASCULAR DISORDER [None]
  - ERYTHEMA [None]
  - VOMITING [None]
  - COUGH [None]
  - PAIN IN EXTREMITY [None]
  - STOMACH MASS [None]
  - ABDOMINAL DISTENSION [None]
  - METASTATIC LYMPHOMA [None]
  - DYSPNOEA [None]
  - SPEECH DISORDER [None]
  - PULMONARY EMBOLISM [None]
  - GASTRIC CANCER STAGE IV [None]
  - OEDEMA PERIPHERAL [None]
  - THROMBOSIS [None]
  - HEMIPARESIS [None]
